APPROVED DRUG PRODUCT: SODIUM NITROPRUSSIDE
Active Ingredient: SODIUM NITROPRUSSIDE
Strength: 25MG/ML
Dosage Form/Route: INJECTABLE;INJECTION
Application: A214971 | Product #001 | TE Code: AP
Applicant: BE PHARMACEUTICALS AG
Approved: Jul 12, 2021 | RLD: No | RS: No | Type: RX